FAERS Safety Report 5936972-3 (Version None)
Quarter: 2008Q4

REPORT INFORMATION
  Report Type: 
  Country: None (occurrence: None)
  Receive Date: 20081031
  Receipt Date: 20081022
  Transmission Date: 20090506
  Serious: Yes (Death)
  Sender: FDA-Public Use
  Company Number: FR-JNJFOC-20080902304

PATIENT
  Age: 61 Year
  Sex: Male

DRUGS (4)
  1. REMICADE [Suspect]
     Dosage: A TOTAL OF 18 INFLIXIMAB INFUSIONS WERE ADMINISTERED (4972 MG)
     Route: 042
  2. REMICADE [Suspect]
     Indication: RHEUMATOID ARTHRITIS
     Route: 042
  3. METHOTREXATE [Suspect]
     Indication: RHEUMATOID ARTHRITIS
  4. ENBREL [Concomitant]
     Indication: RHEUMATOID ARTHRITIS

REACTIONS (2)
  - HEPATIC NEOPLASM [None]
  - PERITONEAL HAEMORRHAGE [None]
